FAERS Safety Report 25347565 (Version 1)
Quarter: 2025Q2

REPORT INFORMATION
  Report Type: Spontaneous
  Country: US (occurrence: None)
  Receive Date: 20250521
  Receipt Date: 20250521
  Transmission Date: 20250717
  Serious: Yes (unspecified)
  Sender: FDA-CTU
  Company Number: None

PATIENT
  Age: 49 Year
  Sex: Female

DRUGS (1)
  1. VOSEVI [Suspect]
     Active Substance: SOFOSBUVIR\VELPATASVIR\VOXILAPREVIR
     Dosage: FREQUENCY : DAILY;?
     Route: 048
     Dates: start: 20250328

REACTIONS (2)
  - Photosensitivity reaction [None]
  - Rash pruritic [None]

NARRATIVE: CASE EVENT DATE: 20250519
